APPROVED DRUG PRODUCT: VERARING
Active Ingredient: ETHINYL ESTRADIOL; ETONOGESTREL
Strength: 0.015MG/24HR;0.12MG/24HR
Dosage Form/Route: RING;VAGINAL
Application: A207577 | Product #001
Applicant: DR REDDYS LABORATORIES SA
Approved: Dec 9, 2021 | RLD: No | RS: No | Type: DISCN